FAERS Safety Report 4321146-2 (Version None)
Quarter: 2004Q1

REPORT INFORMATION
  Report Type: 
  Country: None (occurrence: None)
  Receive Date: 20040315
  Receipt Date: 20030218
  Transmission Date: 20041129
  Serious: Yes (Hospitalization)
  Sender: FDA-Public Use
  Company Number: US_030292420

PATIENT
  Sex: Female

DRUGS (2)
  1. GEMZAR [Suspect]
     Indication: PANCREATIC CARCINOMA
     Dosage: 60 MG/2 WEEK
     Dates: start: 20020401, end: 20021003
  2. CARBOPLATIN [Concomitant]

REACTIONS (1)
  - OESOPHAGITIS [None]
